FAERS Safety Report 8776443 (Version 3)
Quarter: 2012Q4

REPORT INFORMATION
  Report Type: 
  Country: IT (occurrence: IT)
  Receive Date: 20120910
  Receipt Date: 20121012
  Transmission Date: 20130627
  Serious: Yes (Hospitalization, Other)
  Sender: FDA-Public Use
  Company Number: IT-JNJFOC-20120900215

PATIENT
  Age: 44 Year
  Sex: Female
  Weight: 60 kg

DRUGS (4)
  1. HALDOL [Suspect]
     Indication: SELF INJURIOUS BEHAVIOUR
     Route: 048
     Dates: start: 201202
  2. HALDOL [Suspect]
     Indication: SELF INJURIOUS BEHAVIOUR
     Route: 048
     Dates: start: 20120901, end: 20120901
  3. HALDOL [Suspect]
     Indication: DEPRESSION
     Route: 048
     Dates: start: 20120901, end: 20120901
  4. HALDOL [Suspect]
     Indication: DEPRESSION
     Route: 048
     Dates: start: 201202

REACTIONS (4)
  - Self injurious behaviour [Unknown]
  - Head injury [Recovered/Resolved]
  - Hypokalaemia [Recovered/Resolved]
  - Sopor [Unknown]
